FAERS Safety Report 10399231 (Version 2)
Quarter: 2014Q3

REPORT INFORMATION
  Report Type: Spontaneous
  Country: CN (occurrence: CN)
  Receive Date: 20140821
  Receipt Date: 20140903
  Transmission Date: 20150326
  Serious: Yes (Other)
  Sender: FDA-Public Use
  Company Number: CN-JNJFOC-20140810856

PATIENT
  Age: 17 Year
  Sex: Male

DRUGS (1)
  1. INVEGA [Suspect]
     Active Substance: PALIPERIDONE
     Indication: SCHIZOPHRENIA
     Dosage: 6 MG TABLETS
     Route: 048
     Dates: start: 20140808

REACTIONS (2)
  - Intentional overdose [Recovered/Resolved]
  - Protrusion tongue [Recovering/Resolving]

NARRATIVE: CASE EVENT DATE: 20140808
